FAERS Safety Report 4951617-7 (Version None)
Quarter: 2006Q1

REPORT INFORMATION
  Report Type: 
  Country: None (occurrence: None)
  Receive Date: 20060317
  Receipt Date: 20060301
  Transmission Date: 20060701
  Serious: Yes (Other)
  Sender: FDA-Public Use
  Company Number: US200602004320

PATIENT
  Sex: Female

DRUGS (1)
  1. EVISTA [Suspect]
     Dosage: 120 MG DAILY (1/D) ORAL
     Route: 048
     Dates: start: 19950101, end: 19990507

REACTIONS (1)
  - APLASTIC ANAEMIA [None]
